FAERS Safety Report 4322978-7 (Version None)
Quarter: 2004Q1

REPORT INFORMATION
  Report Type: 
  Country: None (occurrence: None)
  Receive Date: 20040322
  Receipt Date: 20040310
  Transmission Date: 20041129
  Serious: Yes (Death, Hospitalization)
  Sender: FDA-Public Use
  Company Number: 2004-01060

PATIENT
  Age: 50 Year
  Sex: Female

DRUGS (2)
  1. GLIPIZIDE [Suspect]
     Indication: DIABETES MELLITUS
     Dosage: 5 MG, DAILY, ORAL
     Route: 048
  2. ALCOHOL (RUM) (ETHANOL) [Suspect]
     Indication: ALCOHOLISM
     Dosage: 1 BOTTLE DAILY, ORAL
     Route: 048

REACTIONS (2)
  - ALCOHOL INTERACTION [None]
  - HEPATIC FAILURE [None]
